FAERS Safety Report 21288674 (Version 2)
Quarter: 2022Q4

REPORT INFORMATION
  Report Type: Spontaneous
  Country: US (occurrence: US)
  Receive Date: 20220902
  Receipt Date: 20221006
  Transmission Date: 20230113
  Serious: No
  Sender: FDA-Public Use
  Company Number: US-BRISTOL-MYERS SQUIBB COMPANY-2022-099308

PATIENT
  Age: 68 Year
  Sex: Female

DRUGS (2)
  1. REVLIMID [Suspect]
     Active Substance: LENALIDOMIDE
     Indication: Plasma cell myeloma
     Route: 048
  2. REVLIMID [Suspect]
     Active Substance: LENALIDOMIDE
     Dosage: AKE 1 CAPSULE BY MOUTH  DAILY FOR 21 DAYS FOLOWED BY 7 DAYS OFF.
     Route: 048
     Dates: start: 20220613

REACTIONS (3)
  - Tremor [Unknown]
  - Platelet count decreased [Unknown]
  - Full blood count abnormal [Unknown]
